FAERS Safety Report 15976154 (Version 3)
Quarter: 2019Q2

REPORT INFORMATION
  Report Type: Spontaneous
  Country: US (occurrence: US)
  Receive Date: 20190218
  Receipt Date: 20190621
  Transmission Date: 20190711
  Serious: No
  Sender: FDA-Public Use
  Company Number: US-PFIZER INC-2019070812

PATIENT
  Age: 72 Year
  Sex: Female

DRUGS (12)
  1. FLOXIN OTIC [Suspect]
     Active Substance: OFLOXACIN
     Dosage: UNK
  2. CIPROFLOXACIN. [Suspect]
     Active Substance: CIPROFLOXACIN
     Dosage: UNK
  3. DICHLORODIFLUOROMETHANE. [Suspect]
     Active Substance: DICHLORODIFLUOROMETHANE
     Dosage: UNK
     Route: 061
  4. TRIMPEX TRIMETHOPRIM HYDROCHLORIDE [Suspect]
     Active Substance: TRIMETHOPRIM HYDROCHLORIDE
     Dosage: UNK
  5. TRICHLOROFLUOROMETHANE [Suspect]
     Active Substance: TRICHLOROMONOFLUOROMETHANE
     Dosage: UNK (INHALERS)
  6. PRILOSEC [Suspect]
     Active Substance: OMEPRAZOLE MAGNESIUM
     Dosage: UNK
  7. ULTRAM ER [Suspect]
     Active Substance: TRAMADOL HYDROCHLORIDE
     Dosage: UNK
  8. MACRODANTIN [Suspect]
     Active Substance: NITROFURANTOIN
     Dosage: UNK
  9. DICHLORODIFLUOROMETHANE. [Suspect]
     Active Substance: DICHLORODIFLUOROMETHANE
     Dosage: UNK (INHALERS)
  10. FLEXERIL [CEFIXIME] [Suspect]
     Active Substance: CEFIXIME
     Dosage: UNK
  11. IMITREX [Suspect]
     Active Substance: SUMATRIPTAN SUCCINATE
     Dosage: UNK
  12. THIMEROSAL [Suspect]
     Active Substance: THIMEROSAL
     Dosage: UNK
     Route: 061

REACTIONS (1)
  - Drug hypersensitivity [Unknown]
